FAERS Safety Report 7556399-0 (Version None)
Quarter: 2011Q2

REPORT INFORMATION
  Report Type: 
  Country: None (occurrence: None)
  Receive Date: 20110620
  Receipt Date: 20110609
  Transmission Date: 20111010
  Serious: Yes (Other)
  Sender: FDA-Public Use
  Company Number: GB-JNJFOC-20110604074

PATIENT
  Age: 9 Year
  Sex: Female

DRUGS (2)
  1. RISPERDAL [Suspect]
     Indication: CONDUCT DISORDER
     Route: 048
     Dates: start: 20091104
  2. CIRCADIN [Concomitant]
     Indication: PRODUCT USED FOR UNKNOWN INDICATION
     Route: 048
     Dates: start: 20110113

REACTIONS (4)
  - ABNORMAL BEHAVIOUR [None]
  - WEIGHT INCREASED [None]
  - AGGRESSION [None]
  - DRUG INEFFECTIVE [None]
